FAERS Safety Report 21739297 (Version 1)
Quarter: 2022Q4

REPORT INFORMATION
  Report Type: Report from Study
  Country: US (occurrence: US)
  Receive Date: 20221216
  Receipt Date: 20221216
  Transmission Date: 20230113
  Serious: Yes (Hospitalization)
  Sender: FDA-Public Use
  Company Number: US-ASTELLAS-2021US021155

PATIENT
  Age: 73 Year
  Sex: Male

DRUGS (5)
  1. ENZALUTAMIDE [Suspect]
     Active Substance: ENZALUTAMIDE
     Indication: Prostate cancer metastatic
     Route: 048
     Dates: start: 20201103, end: 20201124
  2. ENZALUTAMIDE [Suspect]
     Active Substance: ENZALUTAMIDE
     Route: 048
     Dates: start: 20201228, end: 20220701
  3. ENZALUTAMIDE [Suspect]
     Active Substance: ENZALUTAMIDE
     Route: 048
     Dates: start: 20221025
  4. LUPRON [Suspect]
     Active Substance: LEUPROLIDE ACETATE
     Indication: Prostate cancer
     Dosage: UNK UNK, UNKNOWN FREQ.
     Route: 065
     Dates: start: 202004
  5. BICALUTAMIDE [Concomitant]
     Active Substance: BICALUTAMIDE
     Indication: Prostate cancer metastatic
     Dosage: UNK UNK, UNKNOWN FREQ.
     Route: 065
     Dates: start: 202009

REACTIONS (19)
  - Restless legs syndrome [Unknown]
  - Condition aggravated [Unknown]
  - Oedema [Unknown]
  - Fluid retention [Unknown]
  - Fatigue [Not Recovered/Not Resolved]
  - Initial insomnia [Unknown]
  - Somnolence [Unknown]
  - Condition aggravated [Unknown]
  - Anxiety [Unknown]
  - Muscle atrophy [Unknown]
  - Condition aggravated [Unknown]
  - Alopecia [Unknown]
  - Condition aggravated [Unknown]
  - Decreased appetite [Unknown]
  - Condition aggravated [Unknown]
  - Feeling abnormal [Unknown]
  - Condition aggravated [Unknown]
  - Asthenia [Recovered/Resolved]
  - Muscular weakness [Recovered/Resolved]

NARRATIVE: CASE EVENT DATE: 20201101
